FAERS Safety Report 6847312-X (Version None)
Quarter: 2010Q3

REPORT INFORMATION
  Report Type: 
  Country: None (occurrence: None)
  Receive Date: 20100716
  Receipt Date: 20100705
  Transmission Date: 20110219
  Serious: Yes (Other)
  Sender: FDA-Public Use
  Company Number: CA-JNJFOC-20100701855

PATIENT
  Sex: Male
  Weight: 102 kg

DRUGS (6)
  1. REMICADE [Suspect]
     Indication: CROHN'S DISEASE
     Route: 042
  2. REMICADE [Suspect]
     Dosage: 7 INFUSIONS TOTAL
     Route: 042
  3. GRAVOL TAB [Concomitant]
     Indication: PREMEDICATION
  4. GABAPENTIN [Concomitant]
  5. SOLU-CORTEF [Concomitant]
     Indication: PREMEDICATION
  6. BENADRYL [Concomitant]
     Indication: PREMEDICATION
     Route: 042

REACTIONS (3)
  - DIARRHOEA [None]
  - NAUSEA [None]
  - PALLOR [None]
